FAERS Safety Report 15661150 (Version 1)
Quarter: 2018Q4

REPORT INFORMATION
  Report Type: Spontaneous
  Country: US (occurrence: US)
  Receive Date: 20181116
  Receipt Date: 20181116
  Transmission Date: 20190205
  Serious: No
  Sender: FDA-Public Use
  Company Number: None

PATIENT
  Age: 69 Year
  Sex: Female
  Weight: 131.2 kg

DRUGS (2)
  1. DAUNORUBICIN [Suspect]
     Active Substance: DAUNORUBICIN
     Dates: end: 20150205
  2. CYTARABINE. [Suspect]
     Active Substance: CYTARABINE
     Dates: end: 20150209

REACTIONS (16)
  - Pneumonia [None]
  - Left ventricular dysfunction [None]
  - Bacterial infection [None]
  - Somnolence [None]
  - Cardiomegaly [None]
  - Arteriosclerosis coronary artery [None]
  - Pulse absent [None]
  - Pulmonary oedema [None]
  - Pulmonary alveolar haemorrhage [None]
  - Hypoxia [None]
  - Pleural effusion [None]
  - Cardiac arrest [None]
  - Hypokinesia [None]
  - Ejection fraction decreased [None]
  - Pulmonary hypertension [None]
  - Exophthalmos [None]

NARRATIVE: CASE EVENT DATE: 20150217
